FAERS Safety Report 6104528-8 (Version None)
Quarter: 2009Q1

REPORT INFORMATION
  Report Type: 
  Country: None (occurrence: None)
  Receive Date: 20090305
  Receipt Date: 20090225
  Transmission Date: 20090719
  Serious: Yes (Hospitalization)
  Sender: FDA-Public Use
  Company Number: JP-ABBOTT-08P-087-0491759-00

PATIENT
  Age: 86 Year
  Sex: Male

DRUGS (5)
  1. LEUPLIN SR FOR INJECTION 11.25 MG [Suspect]
     Indication: PROSTATE CANCER
     Route: 058
     Dates: start: 20060619, end: 20071106
  2. LEUPROLIDE ACETATE [Suspect]
     Indication: PROSTATE CANCER
     Dates: start: 20050809, end: 20060619
  3. LEUPROLIDE ACETATE [Suspect]
  4. CHLORMADINONE ACETATE TAB [Concomitant]
     Indication: PROSTATE CANCER
     Route: 048
  5. CRAVIT [Concomitant]
     Indication: URINARY TRACT INFECTION
     Route: 048
     Dates: start: 20060817

REACTIONS (1)
  - PNEUMONIA [None]
